FAERS Safety Report 5241413-8 (Version None)
Quarter: 2007Q1

REPORT INFORMATION
  Report Type: 
  Country: None (occurrence: None)
  Receive Date: 20070220
  Receipt Date: 20070214
  Transmission Date: 20070707
  Serious: Yes (Disabling)
  Sender: FDA-Public Use
  Company Number: 2007SE00729

PATIENT
  Age: 30847 Day
  Sex: Male
  Weight: 58 kg

DRUGS (3)
  1. BLOPRESS TABLETS 8 [Suspect]
     Indication: HYPERTENSION
     Route: 048
     Dates: start: 20070112, end: 20070117
  2. GASTER D [Concomitant]
     Indication: GASTRIC ULCER
     Route: 048
     Dates: start: 19880922
  3. RYTHMODAN R [Concomitant]
     Route: 048
     Dates: start: 19920101

REACTIONS (1)
  - CEREBRAL INFARCTION [None]
